FAERS Safety Report 23206840 (Version 2)
Quarter: 2025Q2

REPORT INFORMATION
  Report Type: Spontaneous
  Country: US (occurrence: US)
  Receive Date: 20231120
  Receipt Date: 20250422
  Transmission Date: 20250716
  Serious: No
  Sender: SUNOVION
  Company Number: US-UROVANT SCIENCES GMBH-202308-URV-001575

PATIENT

DRUGS (1)
  1. GEMTESA [Suspect]
     Active Substance: VIBEGRON
     Indication: Product used for unknown indication
     Dosage: 75 MG, QD
     Route: 048

REACTIONS (3)
  - Irritable bowel syndrome [Recovered/Resolved]
  - Product dispensing error [Recovered/Resolved]
  - Product colour issue [Recovered/Resolved]
